FAERS Safety Report 5046145-7 (Version None)
Quarter: 2006Q3

REPORT INFORMATION
  Report Type: 
  Country: None (occurrence: None)
  Receive Date: 20060710
  Receipt Date: 20060629
  Transmission Date: 20061208
  Serious: Yes (Hospitalization, Other)
  Sender: FDA-Public Use
  Company Number: US-JNJFOC-20060700256

PATIENT
  Sex: Female

DRUGS (15)
  1. REMICADE [Suspect]
     Route: 042
  2. REMICADE [Suspect]
     Indication: RHEUMATOID ARTHRITIS
     Route: 042
  3. ARAVA [Concomitant]
  4. AVAPRO [Concomitant]
  5. CELEBREX [Concomitant]
  6. DYAZIDE [Concomitant]
  7. ELAVIL [Concomitant]
  8. FOSAMAX [Concomitant]
  9. MULTI-VITAMIN [Concomitant]
  10. NORVASC [Concomitant]
  11. TOPROL-XL [Concomitant]
  12. VICODIN [Concomitant]
  13. XALATAN [Concomitant]
  14. LIPITOR [Concomitant]
  15. CALCIUM GLUCONATE [Concomitant]

REACTIONS (1)
  - BREAST CANCER [None]
